FAERS Safety Report 8998170 (Version 1)
Quarter: 2012Q4

REPORT INFORMATION
  Report Type: 
  Country: ES (occurrence: ES)
  Receive Date: 20121226
  Receipt Date: 20121226
  Transmission Date: 20130627
  Serious: Yes (Other)
  Sender: FDA-Public Use
  Company Number: PHHY2012ES117205

PATIENT
  Age: 29 Year
  Sex: Female

DRUGS (1)
  1. DORZOLAMIDE+TIMOLOL [Suspect]
     Indication: DEVELOPMENTAL GLAUCOMA

REACTIONS (4)
  - Foetal growth restriction [Unknown]
  - Premature delivery [Unknown]
  - Exposure during breast feeding [Unknown]
  - Maternal exposure during pregnancy [Unknown]
